FAERS Safety Report 5410757-9 (Version None)
Quarter: 2007Q3

REPORT INFORMATION
  Report Type: 
  Country: None (occurrence: None)
  Receive Date: 20070810
  Receipt Date: 20070306
  Transmission Date: 20080115
  Serious: No
  Sender: FDA-Public Use
  Company Number: A0642092A

PATIENT
  Age: 31 Year
  Sex: Male

DRUGS (1)
  1. PAXIL CR [Suspect]
     Indication: OBSESSIVE-COMPULSIVE DISORDER
     Dosage: 25MG PER DAY
     Route: 048
     Dates: start: 20060801, end: 20070205

REACTIONS (2)
  - PARAESTHESIA [None]
  - TINNITUS [None]
